FAERS Safety Report 7354080-4 (Version None)
Quarter: 2011Q1

REPORT INFORMATION
  Report Type: 
  Country: None (occurrence: None)
  Receive Date: 20110315
  Receipt Date: 20110308
  Transmission Date: 20110831
  Serious: Yes (Other)
  Sender: FDA-Public Use
  Company Number: JP-AMGEN-JPNSP2011013154

PATIENT

DRUGS (1)
  1. REGPARA [Suspect]
     Indication: HYPERPARATHYROIDISM SECONDARY
     Dosage: 25 MG, UNK
     Route: 048

REACTIONS (6)
  - HYPOCALCAEMIA [None]
  - DEPRESSION [None]
  - VOMITING [None]
  - ABDOMINAL PAIN [None]
  - FATIGUE [None]
  - NAUSEA [None]
